FAERS Safety Report 8227361-X (Version None)
Quarter: 2012Q1

REPORT INFORMATION
  Report Type: 
  Country: None (occurrence: None)
  Receive Date: 20120322
  Receipt Date: 20120314
  Transmission Date: 20120608
  Serious: Yes (Hospitalization, Other)
  Sender: FDA-Public Use
  Company Number: US-BAYER-2011-042067

PATIENT
  Age: 46 Year
  Sex: Female
  Weight: 50 kg

DRUGS (13)
  1. PROGESTERONE [Concomitant]
     Indication: HOT FLUSH
     Dosage: 4 MG, UNK
     Dates: start: 20070927, end: 20091201
  2. ARIXTRA [Concomitant]
     Dosage: 7.5 MG, QD
     Route: 058
  3. ASCORBIC ACID [Concomitant]
     Dosage: UNK
     Dates: start: 20030101
  4. THYROID TAB [Concomitant]
     Dosage: UNK
     Dates: start: 20070101
  5. TESTOSTERONE [Concomitant]
  6. YASMIN [Suspect]
     Indication: MENSTRUAL CYCLE MANAGEMENT
     Dosage: UNK
     Route: 048
     Dates: start: 20060829, end: 20071019
  7. IBUPROFEN (ADVIL) [Concomitant]
     Dosage: UNK
     Dates: start: 19900101
  8. SYNTHROID [Concomitant]
     Dosage: UNK
     Dates: start: 20070101
  9. DIETARY SUPPLEMENTS [Concomitant]
     Dosage: UNK
     Dates: start: 20030101
  10. YASMIN [Suspect]
     Indication: HORMONE REPLACEMENT THERAPY
  11. TAMBOCOR [Concomitant]
     Indication: BRONCHITIS CHRONIC
  12. NASONEX [Concomitant]
     Indication: RHINITIS
  13. IRON [Concomitant]

REACTIONS (12)
  - WEIGHT INCREASED [None]
  - GENERAL PHYSICAL HEALTH DETERIORATION [None]
  - BACK PAIN [None]
  - MENOPAUSAL SYMPTOMS [None]
  - PAIN [None]
  - PULMONARY EMBOLISM [None]
  - DYSPNOEA [None]
  - DEEP VEIN THROMBOSIS [None]
  - ARTHRALGIA [None]
  - ANXIETY [None]
  - PREMATURE MENOPAUSE [None]
  - EMOTIONAL DISTRESS [None]
